FAERS Safety Report 8592411 (Version 2)
Quarter: 2013Q2

REPORT INFORMATION
  Report Type: Spontaneous
  Country: US (occurrence: US)
  Receive Date: 20120601
  Receipt Date: 20130401
  Transmission Date: 20140414
  Serious: Yes (Other)
  Sender: FDA-Public Use
  Company Number: US-ASTRAZENECA-2012SE21449

PATIENT
  Age: 59 Year
  Sex: Female
  Weight: 76.7 kg

DRUGS (33)
  1. PULMICORT FLEXHALER [Suspect]
     Route: 055
  2. NEXIUM [Suspect]
     Route: 048
  3. CRESTOR [Suspect]
     Route: 048
  4. PLAVIX [Suspect]
     Route: 065
  5. FORADIL [Suspect]
     Route: 065
  6. GLUCOPHAGE [Suspect]
     Route: 065
  7. TRILIPIX [Suspect]
     Route: 048
  8. NOVOLOG MIX 70/30 FLEXPEN [Concomitant]
     Dosage: 70-30% SUSP AS DIRECTED, MAX DOSE OF 120 QD
  9. ZETIA [Concomitant]
     Route: 048
  10. LOVAZA [Concomitant]
     Dosage: 2 CAPS BID WITH MEALS
  11. NIASPAN [Concomitant]
     Route: 048
  12. LOPRESSOR [Concomitant]
  13. SPIRONOLACTONE [Concomitant]
     Route: 048
  14. ALTACE [Concomitant]
  15. BUMEX [Concomitant]
     Route: 048
  16. LANOXIN [Concomitant]
     Route: 048
  17. FOLTX [Concomitant]
     Dosage: 1-2.5-25 MG, ONE TWO TIMES A DAY
     Route: 048
  18. ASPIRIN [Concomitant]
     Route: 048
  19. NITROSTAT [Concomitant]
     Dosage: AS DIRECTED
  20. VITAMIN C [Concomitant]
     Route: 048
  21. VALTREX [Concomitant]
     Dosage: ONE TID AS NEEDED
  22. BENADRYL [Concomitant]
     Route: 048
  23. NYSTATIN [Concomitant]
     Dosage: 100000 UNIT/MG , APPLY TO AFFECTED SITE 2-3 DAILY X 10 DAYS
  24. BYETTA [Concomitant]
     Dosage: 10 MCG/0.4 ML,  AS DIRECTED
  25. PROMETHAZINE [Concomitant]
     Dosage: 25 MG/DOSE, RUB BETWEEN WRISTS Q4-6 HRS PRN
     Route: 061
  26. AMOXICILLIN-POT CLAVULANATE [Concomitant]
     Dosage: 875/125 MG, ONE TWO TIMES A DAY
     Route: 048
  27. LORATADINE [Concomitant]
     Indication: HYPERSENSITIVITY
     Route: 048
  28. BENZONATATE [Concomitant]
     Indication: COUGH
     Dosage: ONE TID OR QID AS NEEDED
     Route: 048
  29. KETOCONAZOLE [Concomitant]
  30. ED-A-HIST-DM [Concomitant]
     Indication: NASAL CONGESTION
     Dosage: 10-4-15 MG/ML ONE TEASPOON EVERY 4 HOURS AS NEEDED
     Route: 048
  31. ED-A-HIST-DM [Concomitant]
     Indication: COUGH
     Dosage: 10-4-15 MG/ML ONE TEASPOON EVERY 4 HOURS AS NEEDED
     Route: 048
  32. MECLIZINE [Concomitant]
     Indication: DIZZINESS
     Dosage: 1/2-1 TABLET FOUR TIMES A DAILY AS NEEDED
  33. ANUSOL HC [Concomitant]
     Route: 054

REACTIONS (10)
  - Myocardial infarction [Unknown]
  - Sinus disorder [Unknown]
  - Nasal congestion [Unknown]
  - Type 1 diabetes mellitus [Unknown]
  - Diabetic neuropathy [Unknown]
  - Sciatica [Unknown]
  - Cough [Unknown]
  - Dizziness [Unknown]
  - Drug hypersensitivity [Unknown]
  - Rash [Unknown]
